FAERS Safety Report 6578581-1 (Version None)
Quarter: 2010Q1

REPORT INFORMATION
  Report Type: 
  Country: None (occurrence: None)
  Receive Date: 20100211
  Receipt Date: 20100202
  Transmission Date: 20100710
  Serious: Yes (Other)
  Sender: FDA-Public Use
  Company Number: US-BAXTER-2010BH002019

PATIENT
  Age: 55 Year
  Sex: Female

DRUGS (3)
  1. DIANEAL [Suspect]
     Indication: PERITONEAL DIALYSIS
     Route: 033
  2. EXTRANEAL [Suspect]
     Indication: PERITONEAL DIALYSIS
     Route: 033
     Dates: start: 20091001
  3. HYDROCODONE [Suspect]
     Indication: ANKLE FRACTURE
     Route: 048
     Dates: start: 20100101, end: 20100101

REACTIONS (3)
  - ANKLE FRACTURE [None]
  - CONSTIPATION [None]
  - WEIGHT INCREASED [None]
